FAERS Safety Report 5305858-X (Version None)
Quarter: 2007Q1

REPORT INFORMATION
  Report Type: 
  Country: None (occurrence: None)
  Receive Date: 20070201
  Receipt Date: 20061109
  Transmission Date: 20070707
  Serious: No
  Sender: FDA-Public Use
  Company Number: 2006PV024918

PATIENT
  Age: 44 Year
  Sex: Female

DRUGS (1)
  1. BYETTA [Suspect]
     Indication: WEIGHT DECREASED
     Dosage: 5 MCG;BID;SC
     Route: 058
     Dates: start: 20061001

REACTIONS (3)
  - ALOPECIA [None]
  - DYSGEUSIA [None]
  - NAUSEA [None]
